FAERS Safety Report 17884191 (Version 2)
Quarter: 2020Q3

REPORT INFORMATION
  Report Type: Report from Study
  Country: IT (occurrence: IT)
  Receive Date: 20200611
  Receipt Date: 20200713
  Transmission Date: 20201103
  Serious: Yes (Other)
  Sender: FDA-Public Use
  Company Number: IT-VIIV HEALTHCARE LIMITED-IT2020GSK093917

PATIENT
  Age: 48 Year
  Sex: Female

DRUGS (6)
  1. ENFUVIRTIDE. [Concomitant]
     Active Substance: ENFUVIRTIDE
     Indication: HIV INFECTION
  2. MARAVIROC [Concomitant]
     Active Substance: MARAVIROC
     Indication: HIV INFECTION
  3. DOLUTEGRAVIR [Suspect]
     Active Substance: DOLUTEGRAVIR
     Indication: HIV INFECTION
     Dosage: 50 MG, BID
  4. RALTEGRAVIR. [Suspect]
     Active Substance: RALTEGRAVIR
     Indication: HIV INFECTION
     Dosage: UNK, BID
  5. ATAZANAVIR. [Concomitant]
     Active Substance: ATAZANAVIR
     Indication: HIV INFECTION
  6. EMTRICITABINE + TENOFOVIR DISOPROXIL [Concomitant]
     Indication: HIV INFECTION

REACTIONS (5)
  - Pathogen resistance [Unknown]
  - Pruritus [Unknown]
  - Viral mutation identified [Unknown]
  - Paraesthesia [Unknown]
  - Virologic failure [Unknown]
